FAERS Safety Report 5401637-3 (Version None)
Quarter: 2007Q3

REPORT INFORMATION
  Report Type: 
  Country: None (occurrence: None)
  Receive Date: 20070731
  Receipt Date: 20070719
  Transmission Date: 20080115
  Serious: Yes (Hospitalization, Other)
  Sender: FDA-Public Use
  Company Number: US-PFIZER INC-2005098954

PATIENT
  Sex: Male
  Weight: 98 kg

DRUGS (1)
  1. ZIPRASIDONE (CAPS) [Suspect]
     Indication: SCHIZOPHRENIA
     Route: 048
     Dates: start: 20050612, end: 20050703

REACTIONS (2)
  - DELUSION [None]
  - PRIAPISM [None]
